FAERS Safety Report 5365555-1 (Version None)
Quarter: 2007Q2

REPORT INFORMATION
  Report Type: 
  Country: None (occurrence: None)
  Receive Date: 20070621
  Receipt Date: 20070615
  Transmission Date: 20071010
  Serious: Yes (Hospitalization)
  Sender: FDA-Public Use
  Company Number: B0475942A

PATIENT
  Age: 18 Month
  Sex: Female
  Weight: 10 kg

DRUGS (5)
  1. AUGMENTIN '125' [Suspect]
     Indication: ALLERGIC BRONCHITIS
     Dosage: 1UNIT THREE TIMES PER DAY
     Route: 048
     Dates: start: 20070402, end: 20070410
  2. FLIXOTIDE [Suspect]
     Indication: ALLERGIC BRONCHITIS
     Dosage: 1PUFF TWICE PER DAY
     Route: 055
     Dates: start: 20070402, end: 20070412
  3. VENTOLIN [Concomitant]
     Indication: ALLERGIC BRONCHITIS
     Route: 055
     Dates: start: 20070402, end: 20070408
  4. BIOCIDAN [Concomitant]
     Indication: ALLERGIC BRONCHITIS
     Route: 061
     Dates: start: 20070402, end: 20070405
  5. CELESTENE [Concomitant]
     Indication: ALLERGIC BRONCHITIS
     Route: 048
     Dates: start: 20070402, end: 20070407

REACTIONS (8)
  - ACUTE GENERALISED EXANTHEMATOUS PUSTULOSIS [None]
  - OEDEMA [None]
  - PYREXIA [None]
  - RASH ERYTHEMATOUS [None]
  - RASH MACULAR [None]
  - RASH PUSTULAR [None]
  - SKIN EXFOLIATION [None]
  - SUPERINFECTION [None]
